FAERS Safety Report 18352336 (Version 1)
Quarter: 2020Q4

REPORT INFORMATION
  Report Type: Spontaneous
  Country: US (occurrence: US)
  Receive Date: 20201006
  Receipt Date: 20201006
  Transmission Date: 20210114
  Serious: No
  Sender: FDA-Public Use
  Company Number: US-SA-2020SA269041

PATIENT

DRUGS (4)
  1. BYETTA [Concomitant]
     Active Substance: EXENATIDE
     Dosage: 10 IU, BID
  2. METFORMIN [Concomitant]
     Active Substance: METFORMIN HYDROCHLORIDE
     Dosage: NIGHT
  3. TOUJEO [Suspect]
     Active Substance: INSULIN GLARGINE
     Dosage: 80 IU
  4. TOUJEO [Suspect]
     Active Substance: INSULIN GLARGINE
     Dosage: 40 IU, QD

REACTIONS (1)
  - Extra dose administered [Unknown]

NARRATIVE: CASE EVENT DATE: 20200929
